FAERS Safety Report 4386982-5 (Version None)
Quarter: 2004Q2

REPORT INFORMATION
  Report Type: 
  Country: None (occurrence: None)
  Receive Date: 20040625
  Receipt Date: 20040614
  Transmission Date: 20050107
  Serious: Yes (Hospitalization)
  Sender: FDA-Public Use
  Company Number: 2004219149GB

PATIENT
  Age: 67 Year
  Sex: Female

DRUGS (14)
  1. CABERGOLINE [Suspect]
     Indication: PARKINSON'S DISEASE
     Dosage: 0.5 MG/DAY, ORAL
     Route: 048
     Dates: start: 20040106, end: 20040107
  2. TRAMADOL [Concomitant]
  3. SIMVASTATIN [Concomitant]
  4. LITHIUM CARBONATE [Concomitant]
  5. PHENELZINE [Concomitant]
  6. HUMAN MIXTARD (INSULIN HUMAN INJECTION, ISOPHANE, INSULIN HUMAN) [Concomitant]
  7. CYCLOPENTOLATE HYDROCHLORIDE [Concomitant]
  8. LANSOPRAZOLE [Concomitant]
  9. SENNA [Concomitant]
  10. BENDROFLUAZIDE [Concomitant]
  11. ZOPICLONE [Concomitant]
  12. GABAPENTIN [Concomitant]
  13. MEBEVERINE [Concomitant]
  14. OLANZAPINE [Concomitant]

REACTIONS (3)
  - CONFUSIONAL STATE [None]
  - HALLUCINATIONS, MIXED [None]
  - PERSECUTORY DELUSION [None]
